FAERS Safety Report 7597291-5 (Version None)
Quarter: 2011Q3

REPORT INFORMATION
  Report Type: 
  Country: None (occurrence: None)
  Receive Date: 20110708
  Receipt Date: 20110311
  Transmission Date: 20111222
  Serious: No
  Sender: FDA-Public Use
  Company Number: US-GLAXOSMITHKLINE-A0917822A

PATIENT
  Age: 60 Year
  Sex: Female

DRUGS (4)
  1. FLOVENT [Suspect]
     Indication: ASTHMA
     Dosage: 1PUFF AS REQUIRED
     Route: 055
     Dates: start: 20090101
  2. VENTOLIN HFA [Suspect]
     Indication: ASTHMA
     Route: 055
  3. VENTOLIN HFA [Concomitant]
  4. CODEINE [Concomitant]

REACTIONS (3)
  - DRUG INEFFECTIVE [None]
  - CANDIDIASIS [None]
  - OROPHARYNGEAL PAIN [None]
